FAERS Safety Report 9988465 (Version 1)
Quarter: 2014Q1

REPORT INFORMATION
  Report Type: Spontaneous
  Country: US (occurrence: US)
  Receive Date: 20140310
  Receipt Date: 20140310
  Transmission Date: 20141002
  Serious: No
  Sender: FDA-Public Use
  Company Number: US-BIOGENIDEC-2014BI016937

PATIENT
  Age: 72 Year
  Sex: Female

DRUGS (11)
  1. TECFIDERA [Suspect]
     Indication: MULTIPLE SCLEROSIS
     Route: 048
     Dates: start: 20140119
  2. CYMBALTA [Concomitant]
  3. TOVIAZ [Concomitant]
  4. EXELON [Concomitant]
  5. LISINOPRIL [Concomitant]
  6. CALCET [Concomitant]
  7. PRILOSEC [Concomitant]
  8. LEXAPRO [Concomitant]
  9. AMANTADINE [Concomitant]
  10. NUVIGIL [Concomitant]
  11. VITAMIN D [Concomitant]

REACTIONS (6)
  - Asthenia [Unknown]
  - Decreased appetite [Unknown]
  - Malaise [Unknown]
  - Gastroenteritis viral [Unknown]
  - Vomiting [Unknown]
  - Abdominal pain upper [Unknown]
